FAERS Safety Report 8801330 (Version 1)
Quarter: 2012Q4

REPORT INFORMATION
  Report Type: 
  Country: DE (occurrence: DE)
  Receive Date: 20120921
  Receipt Date: 20120921
  Transmission Date: 20130627
  Serious: Yes (Hospitalization)
  Sender: FDA-Public Use
  Company Number: DE-PFIZER INC-2012229602

PATIENT
  Age: 51 Year
  Sex: Male
  Weight: 102 kg

DRUGS (11)
  1. GENOTROPIN [Suspect]
     Dosage: 0.5 mg, 1x/day, 7inj/wk
     Route: 058
     Dates: start: 20061125
  2. BUDESONIDE [Concomitant]
     Indication: ASTHMA
     Dosage: UNK
     Dates: start: 20021015
  3. SALBUTAMOL [Concomitant]
     Indication: ASTHMA
     Dosage: UNK
     Dates: start: 20021015
  4. NEBILET [Concomitant]
     Indication: HYPERTENSION
     Dosage: UNK
     Dates: start: 20051110
  5. LISINOPRIL [Concomitant]
     Indication: HYPERTENSION
     Dosage: UNK
     Dates: start: 20060910
  6. NOVOTHYRAL [Concomitant]
     Indication: HYPERTHYROIDISM
     Dosage: UNK
     Dates: start: 20071218
  7. TESTOSTERONE [Concomitant]
     Indication: BLOOD LUTEINISING HORMONE DECREASED
     Dosage: UNK
     Dates: start: 20020715
  8. TESTOSTERONE [Concomitant]
     Indication: BLOOD FOLLICLE STIMULATING HORMONE DECREASED
  9. TESTOSTERONE [Concomitant]
     Indication: HYPOGONADISM
  10. NEXIUM [Concomitant]
     Indication: GASTRIC ULCER
     Dosage: UNK
     Dates: start: 20060910, end: 20080331
  11. HYGROTON [Concomitant]
     Indication: HYPERTENSION
     Dosage: UNK
     Dates: start: 20071001

REACTIONS (1)
  - Endoscopy upper gastrointestinal tract [Unknown]
